FAERS Safety Report 8037935-7 (Version None)
Quarter: 2012Q1

REPORT INFORMATION
  Report Type: 
  Country: None (occurrence: None)
  Receive Date: 20120111
  Receipt Date: 20120104
  Transmission Date: 20120608
  Serious: Yes (Hospitalization)
  Sender: FDA-Public Use
  Company Number: US-ASTRAZENECA-2011SE20214

PATIENT
  Age: 43 Year
  Sex: Male

DRUGS (4)
  1. SEROQUEL [Suspect]
     Indication: ANXIETY
     Route: 048
  2. SEROQUEL [Suspect]
     Indication: BIPOLAR DISORDER
     Route: 048
  3. WARFARIN SODIUM [Concomitant]
  4. SEROQUEL [Suspect]
     Indication: DEPRESSION
     Route: 048

REACTIONS (2)
  - PAIN [None]
  - THROMBOSIS [None]
